FAERS Safety Report 4689160-5 (Version None)
Quarter: 2005Q2

REPORT INFORMATION
  Report Type: 
  Country: None (occurrence: None)
  Receive Date: 20050613
  Receipt Date: 20050329
  Transmission Date: 20051028
  Serious: Yes (Life-Threatening, Hospitalization, Other)
  Sender: FDA-Public Use
  Company Number: 2005UW04842

PATIENT
  Age: 23510 Day
  Sex: Male
  Weight: 87.3 kg

DRUGS (10)
  1. SEROQUEL [Suspect]
     Indication: INSOMNIA
     Route: 048
     Dates: start: 20050308
  2. DOXEPIN HCL [Suspect]
     Route: 048
     Dates: start: 20050308
  3. DIGOXIN [Suspect]
     Indication: ATRIAL FIBRILLATION
     Route: 048
     Dates: start: 20050309
  4. NXY-059 CODE NOT BROKEN [Suspect]
     Indication: ISCHAEMIC STROKE
     Dosage: LOADING DOSE
     Route: 042
     Dates: start: 20050307, end: 20050307
  5. NXY-059 CODE NOT BROKEN [Suspect]
     Dosage: MAINTENANCE DOSE
     Route: 042
     Dates: start: 20050307, end: 20050310
  6. ACTIVASE [Concomitant]
     Dates: start: 20050307, end: 20050307
  7. LIPITOR [Concomitant]
     Indication: HYPERLIPIDAEMIA
     Route: 048
     Dates: start: 20050309
  8. COUMADIN [Concomitant]
     Indication: PROPHYLAXIS
     Route: 048
     Dates: start: 20050308
  9. ZESTRIL [Concomitant]
     Indication: HYPERTENSION
     Route: 048
     Dates: start: 20050310
  10. KEFLEX [Concomitant]
     Indication: PHLEBITIS
     Route: 048
     Dates: start: 20050311

REACTIONS (10)
  - ABDOMINAL DISTENSION [None]
  - ATRIOVENTRICULAR BLOCK COMPLETE [None]
  - ATRIOVENTRICULAR BLOCK FIRST DEGREE [None]
  - ATRIOVENTRICULAR BLOCK SECOND DEGREE [None]
  - ATROPHY [None]
  - CEREBRAL ARTERY STENOSIS [None]
  - CEREBRAL INFARCTION [None]
  - DIVERTICULAR PERFORATION [None]
  - ELECTROCARDIOGRAM QT PROLONGED [None]
  - PERITONITIS [None]
